FAERS Safety Report 23878167 (Version 1)
Quarter: 2024Q2

REPORT INFORMATION
  Report Type: Spontaneous
  Country: US (occurrence: US)
  Receive Date: 20240521
  Receipt Date: 20240521
  Transmission Date: 20240716
  Serious: No
  Sender: FDA-Public Use
  Company Number: US-SANDOZ-SDZ2024US049245

PATIENT
  Sex: Female

DRUGS (1)
  1. ALBUTEROL SULFATE [Suspect]
     Active Substance: ALBUTEROL SULFATE
     Indication: Asthma
     Dosage: UNK; 2 PUFFS EVERY 4 HOURS AS NEEDED
     Route: 065

REACTIONS (3)
  - Incorrect dose administered [Unknown]
  - Occupational exposure to product [Unknown]
  - Device delivery system issue [Unknown]
